FAERS Safety Report 24196731 (Version 1)
Quarter: 2024Q3

REPORT INFORMATION
  Report Type: Spontaneous
  Country: US (occurrence: US)
  Receive Date: 20240810
  Receipt Date: 20240810
  Transmission Date: 20241017
  Serious: Yes (Hospitalization, Other)
  Sender: SANOFI AVENTIS
  Company Number: US-SA-2024SA234203

PATIENT
  Age: 81 Year
  Sex: Male

DRUGS (1)
  1. LEFLUNOMIDE [Suspect]
     Active Substance: LEFLUNOMIDE
     Indication: Rheumatoid arthritis
     Dosage: UNK

REACTIONS (10)
  - Wound dehiscence [Recovering/Resolving]
  - Secretion discharge [Recovering/Resolving]
  - Pain [Recovering/Resolving]
  - Excessive granulation tissue [Recovering/Resolving]
  - Inflammation [Recovering/Resolving]
  - Fibrosis [Recovering/Resolving]
  - Dystrophic calcification [Recovering/Resolving]
  - Serratia infection [Recovering/Resolving]
  - Pseudomonas infection [Recovering/Resolving]
  - Enterococcal infection [Recovering/Resolving]
